FAERS Safety Report 5382160-1 (Version None)
Quarter: 2007Q3

REPORT INFORMATION
  Report Type: 
  Country: None (occurrence: None)
  Receive Date: 20070709
  Receipt Date: 20070627
  Transmission Date: 20080115
  Serious: Yes (Other)
  Sender: FDA-Public Use
  Company Number: JP-SANOFI-SYNTHELABO-A01200707215

PATIENT
  Age: 63 Year
  Sex: Female

DRUGS (3)
  1. ISOVORIN [Suspect]
     Indication: LARGE INTESTINE CARCINOMA
     Route: 041
     Dates: start: 20070621, end: 20070621
  2. ELPLAT [Suspect]
     Indication: LARGE INTESTINE CARCINOMA
     Route: 041
     Dates: start: 20070621, end: 20070621
  3. FLUOROURACIL [Suspect]
     Indication: LARGE INTESTINE CARCINOMA
     Dosage: 600 MG BOLUS FOLLOWED BY 1800 MG INFUSION DAYS 1 AND 2
     Route: 041
     Dates: start: 20070621, end: 20070621

REACTIONS (1)
  - HEPATIC ENCEPHALOPATHY [None]
